FAERS Safety Report 8924038 (Version 1)
Quarter: 2012Q4

REPORT INFORMATION
  Report Type: 
  Country: GB (occurrence: None)
  Receive Date: 20121116
  Receipt Date: 20121116
  Transmission Date: 20130627
  Serious: Yes (Other)
  Sender: FDA-Public Use
  Company Number: AUR-APL-2012-04854

PATIENT
  Sex: Female

DRUGS (1)
  1. SIMVASTATIN (SIMVASTATIN) [Suspect]
     Indication: DRUG USE FOR UNKNOWN INDICATION

REACTIONS (6)
  - Muscle atrophy [None]
  - Gait disturbance [None]
  - Weight decreased [None]
  - Urinary tract infection [None]
  - Diverticulitis intestinal haemorrhagic [None]
  - Anaemia [None]
